FAERS Safety Report 7907696-8 (Version None)
Quarter: 2011Q4

REPORT INFORMATION
  Report Type: 
  Country: None (occurrence: None)
  Receive Date: 20111109
  Receipt Date: 20111109
  Transmission Date: 20120403
  Serious: No
  Sender: FDA-Public Use
  Company Number: None

PATIENT
  Age: 77 Year
  Sex: Female
  Weight: 43.0917 kg

DRUGS (1)
  1. PRADAXA [Suspect]
     Dosage: 150 MG, 2X A DAY
     Dates: start: 20110811, end: 20110919

REACTIONS (5)
  - ILL-DEFINED DISORDER [None]
  - ABDOMINAL PAIN UPPER [None]
  - DYSPHAGIA [None]
  - HAEMATEMESIS [None]
  - FEELING ABNORMAL [None]
